FAERS Safety Report 16530020 (Version 1)
Quarter: 2019Q3

REPORT INFORMATION
  Report Type: Spontaneous
  Country: US (occurrence: US)
  Receive Date: 20190704
  Receipt Date: 20190704
  Transmission Date: 20191004
  Serious: No
  Sender: FDA-Public Use
  Company Number: US-CELGENEUS-USA-20190610228

PATIENT
  Age: 26 Year
  Sex: Female

DRUGS (2)
  1. OTEZLA [Suspect]
     Active Substance: APREMILAST
     Indication: PSORIASIS
     Route: 048
     Dates: end: 201811
  2. OTEZLA [Suspect]
     Active Substance: APREMILAST
     Route: 048
     Dates: start: 201901

REACTIONS (1)
  - Therapeutic product effect decreased [Unknown]

NARRATIVE: CASE EVENT DATE: 20190101
